FAERS Safety Report 17173909 (Version 1)
Quarter: 2019Q4

REPORT INFORMATION
  Report Type: Spontaneous
  Country: US (occurrence: US)
  Receive Date: 20191126
  Receipt Date: 20191126
  Transmission Date: 20200122
  Serious: Yes (Hospitalization, Disabling)
  Sender: FDA-Public Use
  Company Number: None

PATIENT
  Age: 78 Year
  Sex: Female
  Weight: 68.04 kg

DRUGS (19)
  1. KLONOPIN [Concomitant]
     Active Substance: CLONAZEPAM
  2. METOPROLOL TARTRATE. [Concomitant]
     Active Substance: METOPROLOL TARTRATE
  3. LANTUS SOLOSTAR [Concomitant]
     Active Substance: INSULIN GLARGINE
  4. GLYPIZIDE [Concomitant]
     Active Substance: GLIPIZIDE
  5. LINEZOLID. [Suspect]
     Active Substance: LINEZOLID
     Indication: URINARY TRACT INFECTION
     Dosage: ?          QUANTITY:600 MG MILLIGRAM(S);?
     Route: 048
     Dates: start: 20190912, end: 20190913
  6. SYNTHROID [Suspect]
     Active Substance: LEVOTHYROXINE SODIUM
  7. ASPIRIN. [Concomitant]
     Active Substance: ASPIRIN
  8. ALLOPURINOL. [Concomitant]
     Active Substance: ALLOPURINOL
  9. VESICARE [Concomitant]
     Active Substance: SOLIFENACIN SUCCINATE
  10. COLACE [Concomitant]
     Active Substance: DOCUSATE SODIUM
  11. RAMERON [Concomitant]
  12. MOTRIN [Concomitant]
     Active Substance: IBUPROFEN
  13. MALEATE [Concomitant]
  14. MIRALAX [Concomitant]
     Active Substance: POLYETHYLENE GLYCOL 3350
  15. FISH OIL [Concomitant]
     Active Substance: FISH OIL
  16. ZOCOR [Concomitant]
     Active Substance: SIMVASTATIN
  17. CALCIUM [Concomitant]
     Active Substance: CALCIUM
  18. ENALOPRIL [Concomitant]
  19. JANUVIA [Concomitant]
     Active Substance: SITAGLIPTIN PHOSPHATE

REACTIONS (1)
  - Hypersensitivity [None]

NARRATIVE: CASE EVENT DATE: 20190912
